FAERS Safety Report 19834636 (Version 1)
Quarter: 2021Q3

REPORT INFORMATION
  Report Type: Other
  Country: US (occurrence: US)
  Receive Date: 20210915
  Receipt Date: 20210915
  Transmission Date: 20211014
  Serious: No
  Sender: FDA-Public Use
  Company Number: US-LEADIANT BIOSCIENCES INC-2020STPI000389

PATIENT
  Sex: Male

DRUGS (15)
  1. SEROQUEL [Concomitant]
     Active Substance: QUETIAPINE FUMARATE
  2. DOCUSATE [Concomitant]
     Active Substance: DOCUSATE
  3. OXYCOD [OXYCODONE HYDROCHLORIDE] [Concomitant]
  4. VITAMIN D3 [Concomitant]
     Active Substance: CHOLECALCIFEROL
  5. LEXAPRO [Concomitant]
     Active Substance: ESCITALOPRAM OXALATE
  6. KLONOPIN [Concomitant]
     Active Substance: CLONAZEPAM
  7. MEMANTINE. [Concomitant]
     Active Substance: MEMANTINE
  8. TRILEPTAL [Concomitant]
     Active Substance: OXCARBAZEPINE
  9. VITAMIN D [COLECALCIFEROL] [Concomitant]
     Active Substance: CHOLECALCIFEROL
  10. FISH OIL [Concomitant]
     Active Substance: FISH OIL
  11. ASPIRIN. [Concomitant]
     Active Substance: ASPIRIN
  12. SODIUM CHLORIDE. [Concomitant]
     Active Substance: SODIUM CHLORIDE
  13. ZOFRAN [Concomitant]
     Active Substance: ONDANSETRON HYDROCHLORIDE
  14. MATULANE [Suspect]
     Active Substance: PROCARBAZINE HYDROCHLORIDE
     Indication: BRAIN NEOPLASM MALIGNANT
     Dosage: 100 MG DAILY
     Route: 048
     Dates: start: 20200617
  15. KEPPRA [Concomitant]
     Active Substance: LEVETIRACETAM

REACTIONS (1)
  - Fatigue [Not Recovered/Not Resolved]
